FAERS Safety Report 15090713 (Version 1)
Quarter: 2018Q2

REPORT INFORMATION
  Report Type: Spontaneous
  Country: ES (occurrence: ES)
  Receive Date: 20180629
  Receipt Date: 20180629
  Transmission Date: 20180711
  Serious: Yes (Death, Other)
  Sender: FDA-Public Use
  Company Number: ES-BAYER-2018-117503

PATIENT
  Age: 66 Year
  Sex: Male

DRUGS (1)
  1. XOFIGO [Suspect]
     Active Substance: RADIUM RA-223 DICHLORIDE
     Dosage: 6 DF, UNK
     Dates: start: 20170331, end: 20170909

REACTIONS (6)
  - Metastases to liver [None]
  - Neoplasm progression [None]
  - Back pain [None]
  - Pneumonia influenzal [Fatal]
  - Metastases to lung [None]
  - Metastases to soft tissue [None]

NARRATIVE: CASE EVENT DATE: 2018
